FAERS Safety Report 9412739 (Version 1)
Quarter: 2013Q3

REPORT INFORMATION
  Report Type: Spontaneous
  Country: IT (occurrence: IT)
  Receive Date: 20130722
  Receipt Date: 20130722
  Transmission Date: 20140515
  Serious: Yes (Other)
  Sender: FDA-Public Use
  Company Number: IT-ROCHE-1187395

PATIENT
  Age: 72 Year
  Sex: Female

DRUGS (8)
  1. AVASTIN [Suspect]
     Indication: ADENOCARCINOMA OF COLON
     Route: 042
     Dates: start: 20121010, end: 20121111
  2. IRINOTECAN [Suspect]
     Indication: ADENOCARCINOMA OF COLON
     Route: 042
     Dates: start: 20121010, end: 20121111
  3. FLUOROURACILE TEVA [Suspect]
     Indication: ADENOCARCINOMA OF COLON
     Route: 042
     Dates: start: 20121010, end: 20121111
  4. FLUOROURACILE TEVA [Suspect]
     Route: 040
     Dates: start: 20121010, end: 20121111
  5. ONDANSETRON [Concomitant]
     Indication: ADENOCARCINOMA OF COLON
  6. RANIDIL [Concomitant]
     Route: 065
  7. SOLDESAM [Concomitant]
     Route: 065
  8. LEVOFOLENE [Concomitant]
     Route: 065

REACTIONS (6)
  - Abdominal pain [Recovering/Resolving]
  - Conjunctivitis [Recovering/Resolving]
  - Fatigue [Recovering/Resolving]
  - Nausea [Recovering/Resolving]
  - Paraesthesia [Recovering/Resolving]
  - Retching [Recovering/Resolving]
